FAERS Safety Report 9984153 (Version 2)
Quarter: 2014Q1

REPORT INFORMATION
  Report Type: Report from Study
  Country: US (occurrence: US)
  Receive Date: 20140307
  Receipt Date: 20140307
  Transmission Date: 20141002
  Serious: No
  Sender: FDA-Public Use
  Company Number: US-ABBVIE-13P-163-1175926-00

PATIENT
  Age: 49 Year
  Sex: Male

DRUGS (9)
  1. HUMIRA [Suspect]
     Indication: RHEUMATOID ARTHRITIS
     Dates: start: 20131113, end: 20131202
  2. LYRICA [Concomitant]
     Indication: NEUROPATHY PERIPHERAL
  3. METFORMIN [Concomitant]
     Indication: DIABETES MELLITUS
  4. PROTONIX [Concomitant]
     Indication: GASTROOESOPHAGEAL REFLUX DISEASE
  5. NORCO [Concomitant]
     Indication: PAIN
     Dosage: 10/325 MG FIVE TO SIX TIMES A DAY
  6. ZANAFLEX [Concomitant]
     Indication: MUSCLE RELAXANT THERAPY
  7. BENTYL [Concomitant]
     Indication: GASTROINTESTINAL DISORDER
     Dosage: HALF HOUR BEFORE EATING
  8. DULERA [Concomitant]
     Indication: CHRONIC OBSTRUCTIVE PULMONARY DISEASE
  9. ALBUTEROL [Concomitant]
     Indication: CHRONIC OBSTRUCTIVE PULMONARY DISEASE
     Route: 055

REACTIONS (9)
  - Drug dose omission [Not Recovered/Not Resolved]
  - Rash erythematous [Not Recovered/Not Resolved]
  - Injection site erythema [Not Recovered/Not Resolved]
  - Rash [Not Recovered/Not Resolved]
  - Dry skin [Not Recovered/Not Resolved]
  - Local swelling [Not Recovered/Not Resolved]
  - Erythema [Not Recovered/Not Resolved]
  - Local swelling [Not Recovered/Not Resolved]
  - Headache [Not Recovered/Not Resolved]
